FAERS Safety Report 9677473 (Version 1)
Quarter: 2013Q4

REPORT INFORMATION
  Report Type: Report from Study
  Country: US (occurrence: US)
  Receive Date: 20131108
  Receipt Date: 20131108
  Transmission Date: 20140711
  Serious: Yes (Other)
  Sender: FDA-Public Use
  Company Number: PHEH2013US023263

PATIENT
  Sex: Female
  Weight: 77.98 kg

DRUGS (4)
  1. GILENYA [Suspect]
     Indication: MULTIPLE SCLEROSIS
     Dosage: 0.5 MG, UNK
     Route: 048
     Dates: start: 20110928
  2. AVONEX [Concomitant]
     Dosage: 30 UG, /0.5 ML
     Route: 030
  3. NEURONTIN [Concomitant]
     Dosage: 300 MG, QD
  4. SOLU MEDROL [Concomitant]
     Dosage: 40 MG, UNK

REACTIONS (3)
  - Tachycardia [Not Recovered/Not Resolved]
  - Hyperproteinaemia [Not Recovered/Not Resolved]
  - Stress [Not Recovered/Not Resolved]
